FAERS Safety Report 10229493 (Version 1)
Quarter: 2014Q2

REPORT INFORMATION
  Report Type: Spontaneous
  Country: US (occurrence: None)
  Receive Date: 20140609
  Receipt Date: 20140609
  Transmission Date: 20141212
  Serious: Yes (Death, Other)
  Sender: FDA-Public Use
  Company Number: ADR-2014-00969

PATIENT
  Sex: Male

DRUGS (3)
  1. COMPOUNDED BACLOFEN INTRATHECAL [Suspect]
     Indication: PAIN
  2. DILAUDID [Suspect]
  3. BUPIVACAINE (30 MG/ML) [Suspect]

REACTIONS (1)
  - Death [None]
